FAERS Safety Report 7751570-7 (Version None)
Quarter: 2011Q3

REPORT INFORMATION
  Report Type: 
  Country: None (occurrence: None)
  Receive Date: 20110914
  Receipt Date: 20110909
  Transmission Date: 20111222
  Serious: Yes (Other)
  Sender: FDA-Public Use
  Company Number: PHHY2010CA41845

PATIENT
  Sex: Female

DRUGS (2)
  1. ZOMETA [Suspect]
     Indication: BREAST CANCER METASTATIC
     Dosage: 4 MG EVERY 12 WEEKS
     Route: 042
     Dates: start: 20100325
  2. TEMOZOLOMIDE [Concomitant]
     Dosage: 210 MG, QD

REACTIONS (10)
  - MALAISE [None]
  - BRAIN NEOPLASM [None]
  - MEAN CELL HAEMOGLOBIN INCREASED [None]
  - LYMPHOCYTE COUNT DECREASED [None]
  - MEAN CELL VOLUME INCREASED [None]
  - CARBON DIOXIDE INCREASED [None]
  - VEIN DISORDER [None]
  - ASPARTATE AMINOTRANSFERASE INCREASED [None]
  - NEUTROPHIL COUNT DECREASED [None]
  - RED CELL DISTRIBUTION WIDTH INCREASED [None]
